FAERS Safety Report 5807235-1 (Version None)
Quarter: 2008Q3

REPORT INFORMATION
  Report Type: 
  Country: None (occurrence: None)
  Receive Date: 20080709
  Receipt Date: 20080709
  Transmission Date: 20090109
  Serious: Yes (Other)
  Sender: FDA-Public Use
  Company Number: None

PATIENT
  Age: 47 Year
  Sex: Male
  Weight: 89.8122 kg

DRUGS (1)
  1. CHANTIX [Suspect]
     Indication: SMOKING CESSATION THERAPY
     Dosage: 0.5MG 1-2 TIMES DAILY PO
     Route: 048
     Dates: start: 20080403, end: 20080624

REACTIONS (3)
  - DEPRESSION [None]
  - IMPRISONMENT [None]
  - SUICIDAL IDEATION [None]
